FAERS Safety Report 21599608 (Version 1)
Quarter: 2022Q4

REPORT INFORMATION
  Report Type: Spontaneous
  Country: US (occurrence: None)
  Receive Date: 20221115
  Receipt Date: 20221115
  Transmission Date: 20230112
  Serious: Yes (Hospitalization)
  Sender: FDA-Public Use
  Company Number: None

PATIENT
  Age: 69 Year
  Sex: Male
  Weight: 89.8 kg

DRUGS (1)
  1. CYTARABINE\DAUNORUBICIN [Suspect]
     Active Substance: CYTARABINE\DAUNORUBICIN
     Dates: end: 20220830

REACTIONS (8)
  - Sepsis [None]
  - Multi-organ disorder [None]
  - Ischaemic hepatitis [None]
  - Acute kidney injury [None]
  - Pneumonia [None]
  - Lung infiltration [None]
  - Septic shock [None]
  - Renal tubular necrosis [None]

NARRATIVE: CASE EVENT DATE: 20220913
